FAERS Safety Report 23269913 (Version 1)
Quarter: 2023Q4

REPORT INFORMATION
  Report Type: Report from Study
  Country: FR (occurrence: FR)
  Receive Date: 20231207
  Receipt Date: 20231207
  Transmission Date: 20240110
  Serious: Yes (Other)
  Sender: FDA-Public Use
  Company Number: FR-AUROBINDO-AUR-APL-2022-053192

PATIENT
  Age: 56 Year
  Sex: Male

DRUGS (7)
  1. DOCETAXEL [Suspect]
     Active Substance: DOCETAXEL\DOCETAXEL ANHYDROUS
     Indication: Squamous cell carcinoma of head and neck
     Dosage: 75 MILLIGRAM/SQ. METER
     Route: 065
     Dates: start: 201910
  2. CISPLATIN [Suspect]
     Active Substance: CISPLATIN
     Indication: Squamous cell carcinoma of head and neck
     Dosage: 75 MILLIGRAM/SQ. METER
     Route: 065
     Dates: start: 201910
  3. CETUXIMAB [Suspect]
     Active Substance: CETUXIMAB
     Indication: Squamous cell carcinoma of head and neck
     Dosage: 400 MILLIGRAM/SQ. METER
     Route: 065
     Dates: start: 201910
  4. CETUXIMAB [Suspect]
     Active Substance: CETUXIMAB
     Dosage: 250 MILLIGRAM/SQ. METER, EVERY WEEK (FOR 4 CYCLES)
     Route: 065
     Dates: start: 201910
  5. CABOZANTINIB [Suspect]
     Active Substance: CABOZANTINIB
     Indication: Squamous cell carcinoma of head and neck
     Dosage: 20 MILLIGRAM, ONCE A DAY
     Route: 065
  6. CABOZANTINIB [Suspect]
     Active Substance: CABOZANTINIB
     Dosage: 40 MILLIGRAM, ONCE A DAY
     Route: 065
     Dates: start: 202106, end: 202106
  7. CABOZANTINIB [Suspect]
     Active Substance: CABOZANTINIB
     Dosage: 60 MILLIGRAM, ONCE A DAY
     Route: 065
     Dates: start: 202101, end: 202109

REACTIONS (1)
  - Drug ineffective [Unknown]
